FAERS Safety Report 6079115-0 (Version None)
Quarter: 2009Q1

REPORT INFORMATION
  Report Type: 
  Country: None (occurrence: None)
  Receive Date: 20090216
  Receipt Date: 20090209
  Transmission Date: 20090719
  Serious: Yes (Hospitalization)
  Sender: FDA-Public Use
  Company Number: A0734604A

PATIENT
  Age: 53 Year
  Sex: Female
  Weight: 95.5 kg

DRUGS (17)
  1. AVANDIA [Suspect]
     Dosage: 4MG PER DAY
     Route: 048
     Dates: start: 20040101, end: 20060101
  2. PREDNISONE [Concomitant]
  3. PLAVIX [Concomitant]
  4. METOPROLOL TARTRATE [Concomitant]
     Dosage: 50MG TWICE PER DAY
  5. LIPITOR [Concomitant]
     Dosage: 20MG PER DAY
  6. NEXIUM [Concomitant]
     Dosage: 40MG TWICE PER DAY
  7. ISOSORBIDE MONONITRATE [Concomitant]
     Dosage: 60MG PER DAY
  8. LANTUS [Concomitant]
  9. INSULIN [Concomitant]
  10. LASIX [Concomitant]
     Dosage: 40MG PER DAY
  11. LEVOXYL [Concomitant]
     Dosage: 88MCG PER DAY
  12. DIOVAN [Concomitant]
     Dosage: 160MG PER DAY
  13. EFFEXOR XR [Concomitant]
  14. ASPIRIN [Concomitant]
     Dosage: 81MG PER DAY
  15. ASCORBIC ACID [Concomitant]
  16. VITAMIN E [Concomitant]
  17. NITROGLYCERIN [Concomitant]

REACTIONS (8)
  - ANXIETY [None]
  - CARDIAC FAILURE CONGESTIVE [None]
  - CEREBROVASCULAR DISORDER [None]
  - HEART INJURY [None]
  - MITRAL VALVE INCOMPETENCE [None]
  - MYOCARDIAL INFARCTION [None]
  - PAIN [None]
  - TRICUSPID VALVE INCOMPETENCE [None]
